FAERS Safety Report 8761848 (Version 2)
Quarter: 2012Q4

REPORT INFORMATION
  Report Type: Spontaneous
  Country: GB (occurrence: None)
  Receive Date: 20120822
  Receipt Date: 20120904
  Transmission Date: 20130627
  Serious: Yes (Hospitalization, Other)
  Sender: FDA-Public Use
  Company Number: GB-BANPHARM-20120043

PATIENT
  Age: 49 Year
  Sex: Male

DRUGS (11)
  1. IBUPROFEN [Suspect]
     Indication: PAIN
     Dates: end: 20120508
  2. INCIVO [Suspect]
     Indication: HEPATITIS C
     Dates: start: 20120226, end: 20120309
  3. DARBEPOETIN ALFA [Concomitant]
  4. METHADONE [Concomitant]
  5. MIRTAZAPINE [Concomitant]
  6. PARACETAMOL [Concomitant]
  7. RIBAVIRIN [Concomitant]
  8. SALBUTAMOL [Concomitant]
  9. SERETIDE [Concomitant]
  10. TIOTROPIUM [Concomitant]
  11. VIRAFERONPEG [Concomitant]

REACTIONS (4)
  - Anaemia [None]
  - Lower respiratory tract infection [None]
  - Renal impairment [None]
  - Escherichia urinary tract infection [None]
